FAERS Safety Report 4575459-X (Version None)
Quarter: 2005Q1

REPORT INFORMATION
  Report Type: 
  Country: None (occurrence: None)
  Receive Date: 20050128
  Receipt Date: 20050128
  Transmission Date: 20050727
  Serious: Yes (Hospitalization)
  Sender: FDA-Public Use
  Company Number: None

PATIENT
  Sex: Female
  Weight: 59.8748 kg

DRUGS (1)
  1. CALCITRIOL [Suspect]
     Indication: HYPOCALCAEMIA

REACTIONS (2)
  - HYPOCALCAEMIA [None]
  - PHARMACEUTICAL PRODUCT COMPLAINT [None]
